FAERS Safety Report 17224211 (Version 1)
Quarter: 2020Q1

REPORT INFORMATION
  Report Type: Spontaneous
  Country: US (occurrence: US)
  Receive Date: 20200102
  Receipt Date: 20200102
  Transmission Date: 20200409
  Serious: No
  Sender: FDA-Public Use
  Company Number: US-BRISTOL-MYERS SQUIBB COMPANY-BMS-2019-125620

PATIENT
  Sex: Female

DRUGS (1)
  1. ELIQUIS [Suspect]
     Active Substance: APIXABAN
     Indication: PRODUCT USED FOR UNKNOWN INDICATION
     Dosage: PATIENT WAS TAKING APIXABAN SINCE 4 YEARS.
     Route: 065

REACTIONS (4)
  - Musculoskeletal discomfort [Unknown]
  - Limb discomfort [Unknown]
  - Muscle spasms [Unknown]
  - Urinary tract infection [Unknown]
